FAERS Safety Report 5235090-X (Version None)
Quarter: 2007Q1

REPORT INFORMATION
  Report Type: 
  Country: None (occurrence: None)
  Receive Date: 20070207
  Receipt Date: 20070124
  Transmission Date: 20070707
  Serious: Yes (Other)
  Sender: FDA-Public Use
  Company Number: TPG2006A00514

PATIENT
  Age: 65 Year
  Sex: Male

DRUGS (5)
  1. ACTOS [Suspect]
     Indication: DIABETES MELLITUS NON-INSULIN-DEPENDENT
     Dosage: 15 MG (15 MG,1 IN 1 D)
     Route: 048
     Dates: start: 20060901
  2. RENISTAD (ENALAPRIL MALEATE) [Concomitant]
  3. ACETYLSALICYLIC ACID SRT [Concomitant]
  4. SELOKEN RET (METOPROLOL TARTRATE) [Concomitant]
  5. XALATAN [Concomitant]

REACTIONS (2)
  - BALANCE DISORDER [None]
  - VISUAL DISTURBANCE [None]
